FAERS Safety Report 5107326-7 (Version None)
Quarter: 2006Q3

REPORT INFORMATION
  Report Type: 
  Country: None (occurrence: None)
  Receive Date: 20060914
  Receipt Date: 20060901
  Transmission Date: 20061208
  Serious: Yes (Other)
  Sender: FDA-Public Use
  Company Number: 2006096359

PATIENT
  Age: 86 Year
  Sex: Male
  Weight: 65.318 kg

DRUGS (7)
  1. DETROL LA CAPSULE, PROLONGED RELEASE (TOLTGERODINE L-TARTRATE) [Suspect]
     Indication: INCONTINENCE
     Dosage: 4 MG (4 MG, 1 IN 1 D),
     Dates: start: 20060804
  2. WARFARIN SODIUM [Concomitant]
  3. METOPROLOL (METOPROLOL) [Concomitant]
  4. PROZAC [Concomitant]
  5. LANOXIN [Concomitant]
  6. MULTIVITAMIN [Concomitant]
  7. IRON (IRON) [Concomitant]

REACTIONS (2)
  - CONFUSIONAL STATE [None]
  - HALLUCINATION [None]
